FAERS Safety Report 22003454 (Version 1)
Quarter: 2023Q1

REPORT INFORMATION
  Report Type: Spontaneous
  Country: US (occurrence: US)
  Receive Date: 20230217
  Receipt Date: 20230217
  Transmission Date: 20230418
  Serious: No
  Sender: FDA-Public Use
  Company Number: US-ELI_LILLY_AND_COMPANY-US202302001303

PATIENT
  Sex: Female

DRUGS (1)
  1. VERZENIO [Suspect]
     Active Substance: ABEMACICLIB
     Indication: Product used for unknown indication
     Dosage: UNK UNK, UNKNOWN
     Route: 048

REACTIONS (7)
  - Taste disorder [Unknown]
  - Heart rate increased [Unknown]
  - Abdominal discomfort [Unknown]
  - Chest pain [Unknown]
  - Flatulence [Unknown]
  - Dyspnoea [Unknown]
  - Diarrhoea [Unknown]
